FAERS Safety Report 10130715 (Version 1)
Quarter: 2014Q2

REPORT INFORMATION
  Report Type: Spontaneous
  Country: US (occurrence: US)
  Receive Date: 20140428
  Receipt Date: 20140428
  Transmission Date: 20141212
  Serious: No
  Sender: FDA-Public Use
  Company Number: US-PFIZER INC-2014116655

PATIENT
  Age: 40 Year
  Sex: Female
  Weight: 65.76 kg

DRUGS (3)
  1. GEODON [Suspect]
     Dosage: 80 MG, DAILY
     Dates: start: 2004, end: 2013
  2. GEODON [Suspect]
     Dosage: 80 MG, DAILY
  3. CLONAZEPAM [Concomitant]
     Indication: SLEEP DISORDER
     Dosage: 2 MG, DAILY

REACTIONS (4)
  - Malaise [Unknown]
  - Migraine [Unknown]
  - Nausea [Unknown]
  - Abdominal pain upper [Unknown]
